FAERS Safety Report 6204908-6 (Version None)
Quarter: 2009Q2

REPORT INFORMATION
  Report Type: 
  Country: None (occurrence: None)
  Receive Date: 20090526
  Receipt Date: 20090225
  Transmission Date: 20091009
  Serious: Yes (Hospitalization)
  Sender: FDA-Public Use
  Company Number: GB-000001

PATIENT
  Age: 82 Year
  Sex: Female

DRUGS (3)
  1. DESMOPRESSIN (DESMOPRESSIN) TABLET 0.2 MG [Suspect]
     Indication: ENURESIS
     Dosage: 0.2 MG ORAL
     Route: 048
  2. DOSULEPIN (DOSULEPIN) 50 MG [Suspect]
  3. MODURETIC 5-50 [Suspect]

REACTIONS (6)
  - C-REACTIVE PROTEIN INCREASED [None]
  - CONFUSIONAL STATE [None]
  - DYSARTHRIA [None]
  - HYPONATRAEMIA [None]
  - PLEURAL EFFUSION [None]
  - VOMITING [None]
